FAERS Safety Report 6251941-4 (Version None)
Quarter: 2009Q2

REPORT INFORMATION
  Report Type: 
  Country: None (occurrence: None)
  Receive Date: 20090630
  Receipt Date: 20090626
  Transmission Date: 20091009
  Serious: Yes (Life-Threatening, Hospitalization)
  Sender: FDA-Public Use
  Company Number: PHEH2009US03711

PATIENT
  Sex: Female

DRUGS (5)
  1. LOPRESSOR [Suspect]
     Indication: HYPERTENSION
     Dosage: 50 MG, BID
     Route: 048
     Dates: start: 20090410, end: 20090410
  2. PROTONIX [Concomitant]
     Dosage: 40 MG, BID
     Dates: start: 20080401, end: 20090410
  3. PROVERA [Concomitant]
     Dosage: UNK
  4. ESTRADIOL [Concomitant]
     Dosage: UNK
  5. PEPCID [Concomitant]

REACTIONS (8)
  - BRAIN NEOPLASM [None]
  - CENTRAL NERVOUS SYSTEM LESION [None]
  - CEREBRAL HAEMANGIOMA [None]
  - CEREBRAL HAEMORRHAGE [None]
  - COORDINATION ABNORMAL [None]
  - CRYING [None]
  - HYPERTENSION [None]
  - LIMB DISCOMFORT [None]
